FAERS Safety Report 16959681 (Version 2)
Quarter: 2019Q4

REPORT INFORMATION
  Report Type: Spontaneous
  Country: MX (occurrence: MX)
  Receive Date: 20191025
  Receipt Date: 20191127
  Transmission Date: 20200122
  Serious: Yes (Death, Life-Threatening, Other)
  Sender: FDA-Public Use
  Company Number: MX-B.I. PHARMACEUTICALS,INC./RIDGEFIELD-2019-BI-101695

PATIENT
  Age: 74 Year
  Sex: Female
  Weight: 50 kg

DRUGS (1)
  1. TRAYENTA [Suspect]
     Active Substance: LINAGLIPTIN
     Indication: DIABETES MELLITUS
     Route: 048
     Dates: start: 20190719, end: 20190827

REACTIONS (5)
  - Adenocarcinoma pancreas [Unknown]
  - Transaminases increased [Unknown]
  - Jaundice [Unknown]
  - Death [Fatal]
  - Liver injury [Unknown]

NARRATIVE: CASE EVENT DATE: 201911
